FAERS Safety Report 21477960 (Version 4)
Quarter: 2022Q4

REPORT INFORMATION
  Report Type: Report from Study
  Country: MX (occurrence: MX)
  Receive Date: 20221019
  Receipt Date: 20221222
  Transmission Date: 20230112
  Serious: Yes (Life-Threatening, Hospitalization, Other)
  Sender: FDA-Public Use
  Company Number: MX-NOVARTISPH-NVSC2022MX234967

PATIENT
  Sex: Female
  Weight: 66 kg

DRUGS (5)
  1. KISQALI [Suspect]
     Active Substance: RIBOCICLIB
     Indication: Breast cancer
     Dosage: 3 DOSAGE FORM, QD (AT NIGHT)
     Route: 048
  2. KISQALI [Suspect]
     Active Substance: RIBOCICLIB
     Dosage: 2 DOSAGE FORM (AT NIGHT)
     Route: 048
  3. KISQALI [Suspect]
     Active Substance: RIBOCICLIB
     Dosage: UNK (START DATE: 14 OCT )
     Route: 048
  4. KISQALI [Suspect]
     Active Substance: RIBOCICLIB
     Dosage: UNK
     Route: 048
  5. LETROZOLE [Suspect]
     Active Substance: LETROZOLE
     Indication: Product used for unknown indication
     Dosage: UNK (AT NIGHT)
     Route: 065

REACTIONS (21)
  - Haemoglobin decreased [Unknown]
  - Diabetes mellitus [Unknown]
  - Spinal disorder [Unknown]
  - Tachycardia [Unknown]
  - Oral discomfort [Unknown]
  - Blood pressure abnormal [Unknown]
  - Tongue discomfort [Unknown]
  - Ageusia [Unknown]
  - Food aversion [Unknown]
  - Pain in extremity [Unknown]
  - General physical health deterioration [Unknown]
  - Gastritis [Unknown]
  - Dizziness [Unknown]
  - Nausea [Unknown]
  - Weight decreased [Unknown]
  - Feeling abnormal [Unknown]
  - Blood glucose increased [Unknown]
  - Abdominal discomfort [Unknown]
  - Decreased appetite [Unknown]
  - Alopecia [Unknown]
  - Anaemia [Unknown]
